FAERS Safety Report 8493739-2 (Version None)
Quarter: 2012Q3

REPORT INFORMATION
  Report Type: 
  Country: None (occurrence: None)
  Receive Date: 20120706
  Receipt Date: 20120622
  Transmission Date: 20120928
  Serious: Yes (Hospitalization)
  Sender: FDA-Public Use
  Company Number: CHPA2012US013966

PATIENT
  Sex: Female

DRUGS (3)
  1. NITROGLYCERIN [Concomitant]
  2. MAALOX ANTACID/ANTIGAS MAX LIQ [Suspect]
     Indication: DYSPEPSIA
     Dosage: UNK, UNK
     Route: 048
  3. PLAVIX [Concomitant]

REACTIONS (5)
  - OESOPHAGEAL IRRITATION [None]
  - CONCOMITANT DISEASE AGGRAVATED [None]
  - OESOPHAGEAL STENOSIS [None]
  - OESOPHAGEAL MUCOSA ERYTHEMA [None]
  - FATIGUE [None]
